FAERS Safety Report 6232628-0 (Version None)
Quarter: 2009Q2

REPORT INFORMATION
  Report Type: 
  Country: None (occurrence: None)
  Receive Date: 20090617
  Receipt Date: 20090610
  Transmission Date: 20091009
  Serious: Yes (Other)
  Sender: FDA-Public Use
  Company Number: JP-BAYER-200911774BYL

PATIENT
  Age: 37 Year
  Sex: Male
  Weight: 45 kg

DRUGS (11)
  1. FLUDARA [Suspect]
     Indication: ACUTE LYMPHOCYTIC LEUKAEMIA
     Dosage: UNIT DOSE: 50 MG
     Route: 042
     Dates: start: 20090110, end: 20090114
  2. CYCLOPHOSPHAMIDE [Concomitant]
     Indication: ACUTE LYMPHOCYTIC LEUKAEMIA
     Route: 042
     Dates: start: 20090110, end: 20090111
  3. PROGRAF [Concomitant]
     Indication: PROPHYLAXIS AGAINST GRAFT VERSUS HOST DISEASE
     Route: 042
     Dates: start: 20090114, end: 20090221
  4. METHOTREXATE [Concomitant]
     Indication: PROPHYLAXIS AGAINST GRAFT VERSUS HOST DISEASE
     Route: 042
     Dates: start: 20090116, end: 20090116
  5. METHOTREXATE [Concomitant]
     Route: 042
     Dates: start: 20090118, end: 20090118
  6. METHOTREXATE [Concomitant]
     Route: 042
     Dates: start: 20090121, end: 20090121
  7. NEUTROGIN [Concomitant]
     Route: 042
     Dates: start: 20090120, end: 20090220
  8. PREDONINE INJ [Concomitant]
     Indication: ACUTE LYMPHOCYTIC LEUKAEMIA
     Route: 042
     Dates: start: 20090417
  9. ONCOVIN [Concomitant]
     Indication: ACUTE LYMPHOCYTIC LEUKAEMIA
     Route: 042
     Dates: start: 20090418
  10. CONCENTRATED RED CELLS [Concomitant]
     Indication: PACKED RED BLOOD CELL TRANSFUSION
     Route: 042
     Dates: start: 20090113, end: 20090313
  11. PLATELETS [Concomitant]
     Indication: PLATELET TRANSFUSION
     Route: 042
     Dates: start: 20090118, end: 20090422

REACTIONS (2)
  - ACUTE GRAFT VERSUS HOST DISEASE [None]
  - BONE MARROW TRANSPLANT [None]
